FAERS Safety Report 9226292 (Version 2)
Quarter: 2013Q2

REPORT INFORMATION
  Report Type: Spontaneous
  Country: DE (occurrence: JP)
  Receive Date: 20130411
  Receipt Date: 20130426
  Transmission Date: 20140414
  Serious: Yes (Hospitalization)
  Sender: FDA-Public Use
  Company Number: JP-FRI-1000044146

PATIENT
  Age: 66 Year
  Sex: Male

DRUGS (9)
  1. MEMANTINE [Suspect]
     Indication: DEMENTIA ALZHEIMER^S TYPE
     Dosage: 5 MG
     Route: 048
     Dates: start: 20130128
  2. MEMANTINE [Suspect]
     Dosage: 10 MG
     Route: 048
  3. MEMANTINE [Suspect]
     Dosage: 15 MG
  4. MEMANTINE [Suspect]
     Indication: DEMENTIA ALZHEIMER^S TYPE
     Dosage: 20 MG
     Route: 048
     Dates: end: 20130401
  5. ARICEPT [Concomitant]
     Indication: DEMENTIA ALZHEIMER^S TYPE
     Route: 048
  6. TAKEPRON [Concomitant]
     Indication: GASTRIC ULCER
     Route: 048
  7. EXCELASE [Concomitant]
     Route: 048
  8. LAC-B N [Concomitant]
     Route: 048
  9. MAGNESIUM [Concomitant]
     Route: 048

REACTIONS (4)
  - Altered state of consciousness [Recovered/Resolved]
  - Tremor [Recovered/Resolved]
  - Extrapyramidal disorder [Recovered/Resolved]
  - Depression [Recovered/Resolved]
